FAERS Safety Report 20930765 (Version 1)
Quarter: 2022Q2

REPORT INFORMATION
  Report Type: Report from Study
  Country: US (occurrence: US)
  Receive Date: 20220608
  Receipt Date: 20220608
  Transmission Date: 20220721
  Serious: Yes (Other)
  Sender: FDA-Public Use
  Company Number: US-MYLANLABS-2022M1041151

PATIENT
  Age: 68 Year
  Sex: Male
  Weight: 95.25 kg

DRUGS (1)
  1. ATORVASTATIN [Suspect]
     Active Substance: ATORVASTATIN
     Indication: Blood cholesterol abnormal
     Dosage: UNK UNK, QD

REACTIONS (4)
  - Plasma cell myeloma [Unknown]
  - Atrial fibrillation [Unknown]
  - Drug intolerance [Unknown]
  - Product substitution issue [Unknown]

NARRATIVE: CASE EVENT DATE: 20141201
